FAERS Safety Report 10305426 (Version 1)
Quarter: 2014Q3

REPORT INFORMATION
  Report Type: Spontaneous
  Country: US (occurrence: US)
  Receive Date: 20140715
  Receipt Date: 20140715
  Transmission Date: 20150326
  Serious: No
  Sender: FDA-Public Use
  Company Number: US-ASTRAZENECA-2014SE50708

PATIENT
  Age: 49 Year
  Sex: Male
  Weight: 86.2 kg

DRUGS (3)
  1. PANTOPRAZOLE [Concomitant]
     Active Substance: PANTOPRAZOLE SODIUM
  2. NEXIUM 24HR [Suspect]
     Active Substance: ESOMEPRAZOLE MAGNESIUM
     Indication: DYSPEPSIA
     Route: 048
     Dates: start: 201406
  3. LIPITOR [Concomitant]
     Active Substance: ATORVASTATIN CALCIUM
     Indication: BLOOD CHOLESTEROL INCREASED

REACTIONS (7)
  - Tachycardia [Not Recovered/Not Resolved]
  - Hypertension [Not Recovered/Not Resolved]
  - Blood pressure diastolic increased [Not Recovered/Not Resolved]
  - Insomnia [Not Recovered/Not Resolved]
  - Feeling abnormal [Not Recovered/Not Resolved]
  - Blood pressure increased [Not Recovered/Not Resolved]
  - Middle insomnia [Not Recovered/Not Resolved]

NARRATIVE: CASE EVENT DATE: 201406
